FAERS Safety Report 4782618-X (Version None)
Quarter: 2005Q3

REPORT INFORMATION
  Report Type: 
  Country: None (occurrence: None)
  Receive Date: 20050929
  Receipt Date: 20050427
  Transmission Date: 20060218
  Serious: No
  Sender: FDA-Public Use
  Company Number: 403689

PATIENT
  Age: 56 Year
  Sex: Male

DRUGS (8)
  1. COREG [Suspect]
     Indication: HYPERTENSION
     Dosage: 12.5MG TWICE PER DAY
     Route: 048
  2. ASPIRIN [Concomitant]
  3. LANOXIN [Concomitant]
  4. GLUCOPHAGE [Concomitant]
  5. GLUCOTROL [Concomitant]
  6. INSULIN [Concomitant]
  7. VERELAN PM [Concomitant]
  8. NEURONTIN [Concomitant]

REACTIONS (1)
  - BLOOD GLUCOSE INCREASED [None]
